FAERS Safety Report 5741353-1 (Version None)
Quarter: 2008Q2

REPORT INFORMATION
  Report Type: 
  Country: None (occurrence: None)
  Receive Date: 20080513
  Receipt Date: 20080506
  Transmission Date: 20081010
  Serious: Yes (Life-Threatening)
  Sender: FDA-Public Use
  Company Number: 2008-02853

PATIENT
  Age: 4 Year
  Sex: Male

DRUGS (7)
  1. ETOPOSIDE [Suspect]
     Indication: NEUROBLASTOMA
     Dosage: 60 MG/KG
  2. BUSULPHAN(BUSULFAN) [Suspect]
     Indication: NEUROBLASTOMA
     Dosage: 16MG/KG
  3. MELPHALAN(MELPHALAN) [Suspect]
     Indication: NEUROBLASTOMA
     Dosage: 180 MG/M2
  4. CYCLOPHOSPHAMIDE [Concomitant]
  5. TETRAHYDROPYRANYL-ADRIAMYCIN [Concomitant]
  6. VINCRISTINE [Concomitant]
  7. CISPLATIN [Concomitant]

REACTIONS (3)
  - GASTROINTESTINAL HAEMORRHAGE [None]
  - OESOPHAGEAL VARICES HAEMORRHAGE [None]
  - VENOOCCLUSIVE LIVER DISEASE [None]
